FAERS Safety Report 23093675 (Version 1)
Quarter: 2023Q4

REPORT INFORMATION
  Report Type: Spontaneous
  Country: IT (occurrence: IT)
  Receive Date: 20231023
  Receipt Date: 20231023
  Transmission Date: 20240109
  Serious: Yes (Other)
  Sender: FDA-Public Use
  Company Number: IT-CELLTRION INC.-2023IT020113

PATIENT

DRUGS (3)
  1. TRASTUZUMAB [Suspect]
     Active Substance: TRASTUZUMAB
     Indication: Breast cancer stage IV
     Dosage: 420 MG Q21
     Route: 042
     Dates: start: 20230719, end: 20230911
  2. TUCATINIB [Suspect]
     Active Substance: TUCATINIB
     Indication: Breast cancer stage IV
     Dosage: 300 MG, EVERY 12 HOURS
     Route: 048
     Dates: start: 20230719, end: 20230911
  3. CAPECITABINE [Suspect]
     Active Substance: CAPECITABINE
     Indication: Breast cancer stage IV
     Dosage: 3000 MG
     Route: 048
     Dates: start: 20230719, end: 20230911

REACTIONS (1)
  - Palmar-plantar erythrodysaesthesia syndrome [Recovering/Resolving]

NARRATIVE: CASE EVENT DATE: 20230911
